FAERS Safety Report 20920410 (Version 1)
Quarter: 2022Q2

REPORT INFORMATION
  Report Type: Spontaneous
  Country: US (occurrence: None)
  Receive Date: 20220604
  Receipt Date: 20220604
  Transmission Date: 20220721
  Serious: Yes (Life-Threatening, Disabling)
  Sender: FDA-Public Use
  Company Number: None

PATIENT
  Age: 64 Year
  Sex: Male
  Weight: 97.65 kg

DRUGS (3)
  1. METOPROLOL SUCCINATE [Suspect]
     Active Substance: METOPROLOL SUCCINATE
     Indication: Cardiac failure congestive
     Dosage: FREQUENCY : TWICE A DAY;?
     Route: 048
     Dates: start: 20180611, end: 20210412
  2. LOSARTAN [Concomitant]
     Active Substance: LOSARTAN
  3. FISH OIL [Concomitant]

REACTIONS (29)
  - Fatigue [None]
  - Loss of libido [None]
  - Male sexual dysfunction [None]
  - Insomnia [None]
  - Nightmare [None]
  - Night sweats [None]
  - Muscle spasms [None]
  - Amnesia [None]
  - Social avoidant behaviour [None]
  - Impaired driving ability [None]
  - Jealous delusion [None]
  - Anger [None]
  - Hyperacusis [None]
  - Disturbance in attention [None]
  - Feeling abnormal [None]
  - Paranoia [None]
  - Blood glucose increased [None]
  - Blood triglycerides increased [None]
  - Blood cholesterol increased [None]
  - Emotional disorder [None]
  - Personal relationship issue [None]
  - Confusional state [None]
  - Fear [None]
  - Cyanosis [None]
  - Impaired reasoning [None]
  - Cough [None]
  - Suicidal ideation [None]
  - Emotional poverty [None]
  - Catatonia [None]
